FAERS Safety Report 7897562-9 (Version None)
Quarter: 2011Q4

REPORT INFORMATION
  Report Type: 
  Country: None (occurrence: None)
  Receive Date: 20111107
  Receipt Date: 20111027
  Transmission Date: 20120403
  Serious: Yes (Hospitalization)
  Sender: FDA-Public Use
  Company Number: FR-ELI_LILLY_AND_COMPANY-FR201110000175

PATIENT
  Sex: Male

DRUGS (4)
  1. CISPLATIN [Concomitant]
     Dosage: UNK
     Dates: start: 20090504, end: 20090804
  2. CISPLATIN [Concomitant]
     Indication: LUNG ADENOCARCINOMA
     Dosage: 150 MG, MONTHLY (1/M)
     Route: 042
     Dates: start: 20110610, end: 20110720
  3. ALIMTA [Suspect]
     Dosage: UNK
     Dates: start: 20090504, end: 20090804
  4. ALIMTA [Suspect]
     Indication: LUNG ADENOCARCINOMA
     Dosage: 1000 MG, MONTHLY (1/M)
     Route: 042
     Dates: start: 20110610, end: 20110720

REACTIONS (2)
  - ISCHAEMIC STROKE [None]
  - PALPITATIONS [None]
